FAERS Safety Report 10090701 (Version 1)
Quarter: 2014Q2

REPORT INFORMATION
  Report Type: Report from Study
  Country: CA (occurrence: CA)
  Receive Date: 20140421
  Receipt Date: 20140421
  Transmission Date: 20141212
  Serious: Yes (Other)
  Sender: FDA-Public Use
  Company Number: CA-ABBVIE-14P-028-1226870-00

PATIENT
  Sex: Male

DRUGS (2)
  1. HUMIRA [Suspect]
     Indication: ANKYLOSING SPONDYLITIS
     Route: 058
     Dates: start: 20120511, end: 201403
  2. HUMIRA [Suspect]
     Route: 058
     Dates: start: 20140414

REACTIONS (3)
  - Tooth disorder [Recovered/Resolved]
  - Tooth fracture [Recovered/Resolved]
  - Infection [Recovered/Resolved]
